FAERS Safety Report 6823468-X (Version None)
Quarter: 2010Q3

REPORT INFORMATION
  Report Type: 
  Country: None (occurrence: None)
  Receive Date: 20100708
  Receipt Date: 20100629
  Transmission Date: 20110219
  Serious: Yes (Other)
  Sender: FDA-Public Use
  Company Number: PHHY2009CA46155

PATIENT
  Sex: Female

DRUGS (10)
  1. DIOVAN [Suspect]
     Indication: HYPERTENSION
     Dosage: 160 MG, UNK
  2. DIOVAN [Suspect]
     Dosage: 1 DF (320 MG), UNK
     Route: 048
     Dates: end: 20091021
  3. DIOVAN [Suspect]
     Dosage: 160 MG, UNK
     Route: 048
     Dates: start: 20091021, end: 20091022
  4. NIFEDIPINE [Concomitant]
     Route: 048
  5. ATORVASTATIN [Concomitant]
     Route: 048
  6. DIDRONEL [Concomitant]
  7. SYMBICORT [Concomitant]
  8. CARBAMAZEPINE [Concomitant]
  9. ASPIRIN [Concomitant]
     Route: 048
  10. HYDROCHLOROTHIAZIDE [Concomitant]

REACTIONS (5)
  - BLOOD PRESSURE DECREASED [None]
  - DIARRHOEA [None]
  - DIZZINESS [None]
  - HYPONATRAEMIA [None]
  - PRESYNCOPE [None]
